FAERS Safety Report 4605876-0 (Version None)
Quarter: 2005Q2

REPORT INFORMATION
  Report Type: 
  Country: None (occurrence: None)
  Receive Date: 20050303
  Receipt Date: 20041124
  Transmission Date: 20051028
  Serious: No
  Sender: FDA-Public Use
  Company Number: 200417988BWH

PATIENT
  Age: 58 Year
  Sex: Male
  Weight: 83.6887 kg

DRUGS (2)
  1. LEVITRA [Suspect]
     Indication: ERECTILE DYSFUNCTION
     Dosage: 10 MG, TOTAL DAILY, ORAL
     Route: 048
     Dates: start: 20040301
  2. METROLOTION [Concomitant]

REACTIONS (4)
  - GENITAL BURNING SENSATION [None]
  - HEADACHE [None]
  - PENILE PAIN [None]
  - SPONTANEOUS PENILE ERECTION [None]
